FAERS Safety Report 21120840 (Version 1)
Quarter: 2022Q3

REPORT INFORMATION
  Report Type: Spontaneous
  Country: US (occurrence: None)
  Receive Date: 20220722
  Receipt Date: 20220722
  Transmission Date: 20221027
  Serious: Yes (Hospitalization)
  Sender: FDA-Public Use
  Company Number: None

PATIENT
  Age: 31 Year
  Sex: Male
  Weight: 76.5 kg

DRUGS (2)
  1. MAVYRET [Suspect]
     Active Substance: GLECAPREVIR\PIBRENTASVIR
     Indication: Hepatitis C
     Dosage: FREQUENCY : DAILY;?
     Route: 048
     Dates: start: 20220628, end: 20220704
  2. MAVYRET [Concomitant]
     Active Substance: GLECAPREVIR\PIBRENTASVIR
     Dates: start: 20220628, end: 20220705

REACTIONS (9)
  - Abdominal pain [None]
  - Sepsis [None]
  - Hepatorenal syndrome [None]
  - Dyspnoea [None]
  - Liver function test increased [None]
  - Renal impairment [None]
  - White blood cell count increased [None]
  - Neutrophil count increased [None]
  - Platelet count decreased [None]

NARRATIVE: CASE EVENT DATE: 20220704
